FAERS Safety Report 11221369 (Version 2)
Quarter: 2015Q4

REPORT INFORMATION
  Report Type: Spontaneous
  Country: US (occurrence: US)
  Receive Date: 20150626
  Receipt Date: 20151026
  Transmission Date: 20160304
  Serious: Yes (Other)
  Sender: FDA-Public Use
  Company Number: US-BAYER-2015-364218

PATIENT
  Age: 35 Year
  Sex: Female
  Weight: 67.12 kg

DRUGS (1)
  1. MIRENA [Suspect]
     Active Substance: LEVONORGESTREL
     Indication: CONTRACEPTION
     Dosage: 20 MCG/24HR, CONT
     Route: 015
     Dates: start: 20150506, end: 20150629

REACTIONS (4)
  - Presyncope [None]
  - Uterine perforation [Recovered/Resolved]
  - Medication error [None]
  - Device dislocation [Recovered/Resolved]

NARRATIVE: CASE EVENT DATE: 2015
